FAERS Safety Report 6486914-X (Version None)
Quarter: 2009Q4

REPORT INFORMATION
  Report Type: 
  Country: None (occurrence: None)
  Receive Date: 20091210
  Receipt Date: 20091202
  Transmission Date: 20100525
  Serious: Yes (Other)
  Sender: FDA-Public Use
  Company Number: US-AMGEN-US377853

PATIENT
  Sex: Male

DRUGS (2)
  1. NPLATE [Suspect]
     Indication: IDIOPATHIC THROMBOCYTOPENIC PURPURA
     Route: 058
     Dates: start: 20090101
  2. UNSPECIFIED PAIN MEDICATION [Concomitant]
     Route: 065

REACTIONS (1)
  - ACUTE MYELOMONOCYTIC LEUKAEMIA [None]
